FAERS Safety Report 24405514 (Version 3)
Quarter: 2024Q4

REPORT INFORMATION
  Report Type: Spontaneous
  Country: US (occurrence: US)
  Receive Date: 20241007
  Receipt Date: 20241112
  Transmission Date: 20250114
  Serious: Yes (Hospitalization)
  Sender: PIERRE FABRE MEDICAMENT
  Company Number: US-PFM-2024-05359

PATIENT
  Sex: Female
  Weight: 6.24 kg

DRUGS (4)
  1. HEMANGEOL [Suspect]
     Active Substance: PROPRANOLOL HYDROCHLORIDE
     Indication: Haemangioma
     Dosage: 0.8 ML, BID (2/DAY)
     Dates: start: 20240904
  2. HEMANGEOL [Suspect]
     Active Substance: PROPRANOLOL HYDROCHLORIDE
     Dosage: 1.5 ML, BID (2/DAY)
  3. HEMANGEOL [Suspect]
     Active Substance: PROPRANOLOL HYDROCHLORIDE
     Dosage: 0.9 ML
  4. TIMOLOL [Concomitant]
     Active Substance: TIMOLOL\TIMOLOL MALEATE
     Indication: Product used for unknown indication
     Dosage: UNK; DROPS

REACTIONS (9)
  - Dehydration [Unknown]
  - Food aversion [Unknown]
  - Decreased appetite [Not Recovered/Not Resolved]
  - Cyanosis [Unknown]
  - Infantile spitting up [Unknown]
  - Haemangioma [Unknown]
  - Condition aggravated [Unknown]
  - Drug titration error [Unknown]
  - Off label use [Unknown]
